FAERS Safety Report 8334622-2 (Version None)
Quarter: 2012Q2

REPORT INFORMATION
  Report Type: 
  Country: None (occurrence: None)
  Receive Date: 20120503
  Receipt Date: 20120427
  Transmission Date: 20120825
  Serious: No
  Sender: FDA-Public Use
  Company Number: US-BAYER-2012-043018

PATIENT
  Sex: Female

DRUGS (1)
  1. GADAVIST [Suspect]
     Indication: PRODUCT USED FOR UNKNOWN INDICATION
     Dosage: 7.5 CC
     Dates: start: 20120417, end: 20120417

REACTIONS (1)
  - VOMITING [None]
